FAERS Safety Report 4812891-0 (Version None)
Quarter: 2005Q4

REPORT INFORMATION
  Report Type: 
  Country: None (occurrence: None)
  Receive Date: 20051028
  Receipt Date: 20041203
  Transmission Date: 20060501
  Serious: No
  Sender: FDA-Public Use
  Company Number: US-GLAXOSMITHKLINE-A0536029A

PATIENT
  Age: 61 Year
  Sex: Female

DRUGS (4)
  1. ADVAIR DISKUS 100/50 [Suspect]
     Indication: ASTHMA
     Dosage: 1PUFF TWICE PER DAY
     Route: 055
  2. PREMARIN [Concomitant]
  3. NEXIUM [Concomitant]
     Route: 065
  4. SYNTHROID [Concomitant]

REACTIONS (4)
  - DYSGEUSIA [None]
  - DYSPHONIA [None]
  - HEADACHE [None]
  - SINUSITIS [None]
